FAERS Safety Report 9152356 (Version 1)
Quarter: 2013Q1

REPORT INFORMATION
  Report Type: Spontaneous
  Country: US (occurrence: US)
  Receive Date: 20130308
  Receipt Date: 20130308
  Transmission Date: 20140127
  Serious: Yes (Other)
  Sender: FDA-Public Use
  Company Number: US-ASTRAZENECA-2013SE15115

PATIENT
  Age: 72 Year
  Sex: Male
  Weight: 108 kg

DRUGS (2)
  1. NEXIUM [Suspect]
     Indication: GASTROOESOPHAGEAL REFLUX DISEASE
     Route: 048
  2. COREG [Concomitant]
     Indication: HYPERTENSION

REACTIONS (6)
  - Gastric cancer [Unknown]
  - Gastrooesophageal reflux disease [Unknown]
  - Abdominal pain upper [Unknown]
  - Hypertension [Unknown]
  - Abdominal discomfort [Unknown]
  - Intentional drug misuse [Unknown]
